FAERS Safety Report 9474666 (Version 4)
Quarter: 2013Q4

REPORT INFORMATION
  Report Type: Spontaneous
  Country: US (occurrence: US)
  Receive Date: 20130823
  Receipt Date: 20131227
  Transmission Date: 20140711
  Serious: Yes (Hospitalization, Other)
  Sender: FDA-Public Use
  Company Number: US-009507513-1204USA03121

PATIENT
  Sex: 0
  Weight: 65.31 kg

DRUGS (1)
  1. FOSAMAX [Suspect]
     Indication: OSTEOPOROSIS PROPHYLAXIS
     Dosage: 70 MG, QD
     Route: 048
     Dates: end: 200601

REACTIONS (36)
  - Intramedullary rod insertion [Unknown]
  - Femur fracture [Unknown]
  - Femur fracture [Recovering/Resolving]
  - Renal failure chronic [Not Recovered/Not Resolved]
  - Intramedullary rod insertion [Unknown]
  - Femur fracture [Unknown]
  - Femur fracture [Recovering/Resolving]
  - Low turnover osteopathy [Unknown]
  - Foot fracture [Recovered/Resolved]
  - Vitamin D deficiency [Unknown]
  - Calcium deficiency [Unknown]
  - Spinal compression fracture [Unknown]
  - Arthropathy [Unknown]
  - Osteopenia [Unknown]
  - Foot fracture [Recovered/Resolved]
  - Fracture delayed union [Unknown]
  - Medical device removal [Unknown]
  - Fracture nonunion [Unknown]
  - Foot fracture [Unknown]
  - Chondrocalcinosis [Unknown]
  - Chondrocalcinosis [Unknown]
  - Exostosis [Unknown]
  - Lung hyperinflation [Unknown]
  - Osteoarthritis [Unknown]
  - Abscess limb [Unknown]
  - Seronegative arthritis [Unknown]
  - Anaemia [Unknown]
  - Clostridium difficile colitis [Unknown]
  - Pyelonephritis [Unknown]
  - Urinary tract infection [Unknown]
  - Bacterial sepsis [Unknown]
  - Urosepsis [Unknown]
  - Colitis [Unknown]
  - Tonsillectomy [Unknown]
  - Inappropriate schedule of drug administration [Unknown]
  - Gastrooesophageal reflux disease [Unknown]
